FAERS Safety Report 5228457-7 (Version None)
Quarter: 2007Q1

REPORT INFORMATION
  Report Type: 
  Country: None (occurrence: None)
  Receive Date: 20070205
  Receipt Date: 20070125
  Transmission Date: 20070707
  Serious: Yes (Hospitalization, Other)
  Sender: FDA-Public Use
  Company Number: US-JNJFOC-20070106753

PATIENT
  Sex: Male
  Weight: 39 kg

DRUGS (6)
  1. INFLIXIMAB [Suspect]
     Indication: INFLAMMATORY BOWEL DISEASE
     Route: 042
  2. FLUCONAZOLE [Concomitant]
  3. TYLENOL [Concomitant]
  4. FLONASE [Concomitant]
  5. LOVENOX [Concomitant]
     Route: 058
  6. COUMADIN [Concomitant]

REACTIONS (3)
  - APPENDICECTOMY [None]
  - INTESTINAL STOMA [None]
  - SIGMOIDECTOMY [None]
